FAERS Safety Report 17081850 (Version 1)
Quarter: 2019Q4

REPORT INFORMATION
  Report Type: Spontaneous
  Country: US (occurrence: US)
  Receive Date: 20191030
  Receipt Date: 20191030
  Transmission Date: 20200122
  Serious: Yes (Other)
  Sender: FDA-Public Use
  Company Number: None

PATIENT
  Age: 40 Year
  Sex: Female

DRUGS (1)
  1. STELARA [Suspect]
     Active Substance: USTEKINUMAB
     Indication: PRODUCT USED FOR UNKNOWN INDICATION
     Dosage: ?          OTHER STRENGTH:90MG/1ML;OTHER FREQUENCY:EVERY 8 WEEKS;?
     Route: 058
     Dates: start: 201904

REACTIONS (2)
  - Musculoskeletal pain [None]
  - Joint dislocation [None]

NARRATIVE: CASE EVENT DATE: 201909
